FAERS Safety Report 4598904-2 (Version None)
Quarter: 2005Q1

REPORT INFORMATION
  Report Type: 
  Country: None (occurrence: None)
  Receive Date: 20050304
  Receipt Date: 20050113
  Transmission Date: 20050727
  Serious: Yes (Other)
  Sender: FDA-Public Use
  Company Number: FR-ABBOTT-05P-056-0286726-00

PATIENT
  Sex: Male

DRUGS (16)
  1. VALPROATE SODIUM [Suspect]
     Indication: EPILEPSY
     Dosage: 33%
     Route: 048
     Dates: start: 20041104, end: 20041212
  2. VALPROATE SODIUM [Suspect]
     Dosage: 33%
     Route: 048
     Dates: start: 20040310, end: 20041103
  3. VALPROATE SODIUM [Suspect]
     Dosage: 33%
     Route: 048
     Dates: start: 20041213, end: 20050131
  4. VALPROATE SODIUM [Suspect]
     Dosage: 33%
     Route: 048
     Dates: start: 20050201, end: 20050201
  5. VALPROATE SODIUM [Suspect]
     Route: 048
     Dates: start: 20050202
  6. RIFAMPICIN [Interacting]
     Indication: ARTHRODESIS
     Route: 048
     Dates: start: 20041104, end: 20050201
  7. CIPROFLOXACIN [Concomitant]
     Indication: ARTHRODESIS
     Route: 048
     Dates: start: 20041101
  8. TOPIRAMATE [Concomitant]
     Indication: EPILEPSY
     Route: 048
     Dates: end: 20041212
  9. TOPIRAMATE [Concomitant]
     Route: 048
     Dates: start: 20041213, end: 20050130
  10. TOPIRAMATE [Concomitant]
     Route: 048
     Dates: start: 20050131, end: 20050131
  11. TOPIRAMATE [Concomitant]
     Route: 048
     Dates: start: 20050201
  12. CLONAZEPAM [Concomitant]
     Indication: EPILEPSY
     Route: 048
     Dates: end: 20041212
  13. CLONAZEPAM [Concomitant]
     Route: 048
     Dates: start: 20041213
  14. HYDROXYZINE HYDROCHLORIDE [Concomitant]
     Indication: DRUG USE FOR UNKNOWN INDICATION
     Route: 050
  15. PARACETAMOL [Concomitant]
     Indication: DRUG USE FOR UNKNOWN INDICATION
     Route: 048
     Dates: start: 20041104
  16. RANITIDINE HYDROCHLORIDE [Concomitant]
     Indication: DRUG USE FOR UNKNOWN INDICATION
     Route: 048
     Dates: start: 20041104, end: 20041104

REACTIONS (5)
  - ANTICONVULSANT DRUG LEVEL DECREASED [None]
  - CONDITION AGGRAVATED [None]
  - CONVULSION [None]
  - DRUG INTERACTION [None]
  - DRUG LEVEL BELOW THERAPEUTIC [None]
